FAERS Safety Report 25509264 (Version 2)
Quarter: 2025Q3

REPORT INFORMATION
  Report Type: Report from Study
  Country: JP (occurrence: JP)
  Receive Date: 20250703
  Receipt Date: 20250807
  Transmission Date: 20251021
  Serious: Yes (Other)
  Sender: RADIUS PHARM
  Company Number: JP-RADIUS HEALTH INC.-JP-RADIUS-25047864

PATIENT
  Age: 74 Year
  Sex: Female

DRUGS (2)
  1. ABALOPARATIDE [Suspect]
     Active Substance: ABALOPARATIDE
     Indication: Osteoporosis
     Dosage: 80 MICROGRAM, QD
     Route: 058
     Dates: start: 20250318, end: 202505
  2. DIETARY SUPPLEMENT\PROBIOTICS [Concomitant]
     Active Substance: DIETARY SUPPLEMENT\PROBIOTICS NOS
     Indication: Constipation
     Route: 048

REACTIONS (6)
  - Hepatic function abnormal [Recovered/Resolved]
  - Abdominal pain upper [Recovered/Resolved]
  - Physical deconditioning [Unknown]
  - Erythema [Recovered/Resolved]
  - Feeling hot [Recovered/Resolved]
  - Constipation [Unknown]

NARRATIVE: CASE EVENT DATE: 20250101
